FAERS Safety Report 8267408-8 (Version None)
Quarter: 2012Q2

REPORT INFORMATION
  Report Type: 
  Country: None (occurrence: None)
  Receive Date: 20120409
  Receipt Date: 20120402
  Transmission Date: 20120825
  Serious: Yes (Death, Hospitalization, Other)
  Sender: FDA-Public Use
  Company Number: PHHY2010FR83511

PATIENT
  Sex: Female

DRUGS (2)
  1. TEGRETOL [Suspect]
     Indication: PAIN IN JAW
     Dosage: 200 MG, UNK
     Dates: start: 20100101
  2. TEGRETOL [Suspect]
     Indication: HEADACHE
     Dates: start: 20100101

REACTIONS (3)
  - FALL [None]
  - RESPIRATORY DISORDER [None]
  - FEMUR FRACTURE [None]
